FAERS Safety Report 9594402 (Version 2)
Quarter: 2013Q4

REPORT INFORMATION
  Report Type: Spontaneous
  Country: US (occurrence: US)
  Receive Date: 20131004
  Receipt Date: 20131010
  Transmission Date: 20140711
  Serious: Yes (Hospitalization)
  Sender: FDA-Public Use
  Company Number: US-OTSUKA-US-2013-11752

PATIENT
  Age: 50 Year
  Sex: Male
  Weight: 73 kg

DRUGS (7)
  1. ABILIFY MAINTENA [Suspect]
     Indication: BIPOLAR I DISORDER
     Dosage: 300 MG MILLIGRAM(S), QM
     Dates: start: 20130814, end: 20130814
  2. ABILIFY MAINTENA [Suspect]
     Dosage: 300 MG MILLIGRAM(S), QM
     Route: 030
     Dates: start: 20130716, end: 20130716
  3. ABILIFY [Suspect]
     Indication: BIPOLAR DISORDER
     Dosage: 15 MG MILLIGRAM(S), QAM
     Route: 048
     Dates: start: 201305, end: 201307
  4. SEROQUEL [Concomitant]
     Indication: PRODUCT USED FOR UNKNOWN INDICATION
     Dosage: UNK
  5. DEPAKOTE [Concomitant]
     Indication: MOOD SWINGS
     Dosage: 750 MG MILLIGRAM(S), BID
  6. TRAZODONE [Concomitant]
     Indication: SLEEP DISORDER
     Dosage: 50 MG MILLIGRAM(S), HS
  7. FLUOXETINE [Concomitant]
     Indication: DEPRESSION
     Dosage: 40 MG MILLIGRAM(S), QD

REACTIONS (7)
  - Paranoia [Recovered/Resolved]
  - Delusion [Recovered/Resolved]
  - Mood altered [Recovered/Resolved]
  - Psychotic disorder [Recovered/Resolved]
  - Aggression [Recovered/Resolved]
  - Confusional state [Recovered/Resolved]
  - Off label use [Recovered/Resolved]
